FAERS Safety Report 4403766-X (Version None)
Quarter: 2004Q3

REPORT INFORMATION
  Report Type: 
  Country: None (occurrence: None)
  Receive Date: 20040721
  Receipt Date: 20040527
  Transmission Date: 20050211
  Serious: Yes (Other)
  Sender: FDA-Public Use
  Company Number: PHBS2004AT07097

PATIENT
  Age: 38 Year
  Sex: Male

DRUGS (3)
  1. CLOZARIL [Suspect]
     Indication: PSYCHOTIC DISORDER
     Dosage: 25 MG/D
     Route: 065
  2. CLOZARIL [Suspect]
     Dosage: 100 MG/D
     Route: 065
  3. CLOZARIL [Suspect]
     Dosage: 12.5 MG/D
     Route: 065

REACTIONS (1)
  - VITREOUS OPACITIES [None]
